FAERS Safety Report 6274654-1 (Version None)
Quarter: 2009Q3

REPORT INFORMATION
  Report Type: 
  Country: None (occurrence: None)
  Receive Date: 20090717
  Receipt Date: 20090707
  Transmission Date: 20100115
  Serious: Yes (Hospitalization)
  Sender: FDA-Public Use
  Company Number: DSA_33734_2009

PATIENT
  Sex: Male
  Weight: 80.7403 kg

DRUGS (3)
  1. XENAZINE [Suspect]
     Indication: HUNTINGTON'S CHOREA
     Dosage: 50 MG BID ORAL
     Route: 048
     Dates: start: 20090201, end: 20090301
  2. SEROQUEL [Concomitant]
  3. CLONAZEPAM [Concomitant]

REACTIONS (3)
  - AGGRESSION [None]
  - AGITATION [None]
  - OBSESSIVE-COMPULSIVE DISORDER [None]
